FAERS Safety Report 18735614 (Version 3)
Quarter: 2021Q1

REPORT INFORMATION
  Report Type: Spontaneous
  Country: US (occurrence: US)
  Receive Date: 20210113
  Receipt Date: 20210129
  Transmission Date: 20210419
  Serious: Yes (Hospitalization)
  Sender: FDA-Public Use
  Company Number: US-009507513-2101USA001397

PATIENT
  Age: 14 Year
  Sex: Female
  Weight: 58.96 kg

DRUGS (3)
  1. ABILIFY [Concomitant]
     Active Substance: ARIPIPRAZOLE
     Dosage: 5 MILLIGRAM, NIGHTLY (QD), (DOESN^T ALWAYS TAKE IT)
  2. NEXPLANON [Suspect]
     Active Substance: ETONOGESTREL
     Indication: CONTRACEPTION
     Dosage: 1 ROD, EVERY 3 YEARS, IN LEFT UPPER ARM
     Route: 059
     Dates: start: 20201202
  3. KEFLEX [Concomitant]
     Active Substance: CEPHALEXIN
     Dosage: UNK

REACTIONS (4)
  - Maternal exposure during pregnancy [Not Recovered/Not Resolved]
  - Abdominal pain [Not Recovered/Not Resolved]
  - Device placement issue [Not Recovered/Not Resolved]
  - Complication of device removal [Not Recovered/Not Resolved]

NARRATIVE: CASE EVENT DATE: 20201202
